FAERS Safety Report 4286357-3 (Version None)
Quarter: 2004Q1

REPORT INFORMATION
  Report Type: 
  Country: None (occurrence: None)
  Receive Date: 20040121
  Receipt Date: 20030224
  Transmission Date: 20041129
  Serious: Yes (Hospitalization)
  Sender: FDA-Public Use
  Company Number: A03200300384

PATIENT
  Sex: Female
  Weight: 50.8029 kg

DRUGS (5)
  1. PLAVIX [Suspect]
     Dosage: ORAL
     Route: 048
     Dates: start: 20020701, end: 20030222
  2. RAMIPRIL [Concomitant]
  3. ZOLPIDEM TARTRATE [Concomitant]
  4. LORAZEPAM [Concomitant]
  5. CARVEDILOL [Concomitant]

REACTIONS (3)
  - ANAEMIA [None]
  - MOUTH HAEMORRHAGE [None]
  - RECTAL HAEMORRHAGE [None]
